FAERS Safety Report 9847836 (Version 2)
Quarter: 2014Q1

REPORT INFORMATION
  Report Type: Spontaneous
  Country: US (occurrence: US)
  Receive Date: 20140128
  Receipt Date: 20140210
  Transmission Date: 20141002
  Serious: Yes (Hospitalization, Disabling)
  Sender: FDA-Public Use
  Company Number: US-009507513-1401USA012246

PATIENT
  Age: 94 Year
  Sex: Female

DRUGS (1)
  1. INVANZ [Suspect]
     Indication: ARTHRITIS BACTERIAL
     Dosage: 1 G, QD
     Route: 042
     Dates: start: 20140117, end: 20140124

REACTIONS (3)
  - Dehydration [Recovered/Resolved]
  - Muscular weakness [Recovered/Resolved]
  - Fatigue [Recovered/Resolved]
